FAERS Safety Report 14651482 (Version 4)
Quarter: 2018Q4

REPORT INFORMATION
  Report Type: Spontaneous
  Country: IT (occurrence: IT)
  Receive Date: 20180317
  Receipt Date: 20181218
  Transmission Date: 20190204
  Serious: Yes (Other)
  Sender: FDA-Public Use
  Company Number: IT-SUN PHARMACEUTICAL INDUSTRIES LTD-2018RR-166491

PATIENT
  Age: 55 Year
  Sex: Female

DRUGS (15)
  1. TAMOXIFEN [Suspect]
     Active Substance: TAMOXIFEN
     Indication: CANCER HORMONAL THERAPY
     Dosage: 20 MG, DAILY
     Route: 065
     Dates: start: 201207
  2. EXEMESTANE. [Suspect]
     Active Substance: EXEMESTANE
     Indication: DISEASE PROGRESSION
     Dosage: 25 MG, DAILY
     Route: 065
     Dates: start: 201507
  3. CAPECITABINE. [Suspect]
     Active Substance: CAPECITABINE
     Indication: BREAST CANCER METASTATIC
     Dosage: 1000 MG/M2, BID, ON DAYS 1-14 TRIWEEKLY
     Route: 065
  4. LETROZOLE. [Suspect]
     Active Substance: LETROZOLE
     Indication: CANCER HORMONAL THERAPY
     Dosage: 2.5 MG, DAILY
     Route: 065
     Dates: start: 201311
  5. LIPOSOMAL DOXORUBICIN [Suspect]
     Active Substance: DOXORUBICIN HYDROCHLORIDE
     Indication: BREAST CANCER METASTATIC
     Dosage: 60 MG/M2, 3/WEEK, ON DAY 1
     Route: 065
  6. CYCLOFOSFAMIDE [Suspect]
     Active Substance: CYCLOPHOSPHAMIDE
     Indication: BREAST CANCER METASTATIC
     Dosage: 600 MG/M2, 3/WEEK, ON DAY 1
     Route: 065
  7. ZOLEDRONIC ACID [Suspect]
     Active Substance: ZOLEDRONIC ACID
     Indication: BREAST CANCER METASTATIC
     Dosage: 4 MG, MONTHLY,ON DAY 1
     Route: 042
  8. VINORELBINE [Suspect]
     Active Substance: VINORELBINE\VINORELBINE TARTRATE
     Dosage: 80 MG/M2, AT SUBSEQUENT CYCLES
     Route: 048
  9. DOCETAXEL. [Suspect]
     Active Substance: DOCETAXEL
     Indication: DISEASE PROGRESSION
     Dosage: 75 MG/M2, 3/WEEK, ON DAY 1
     Route: 065
     Dates: start: 201311
  10. NAB-PACLITAXEL [Suspect]
     Active Substance: PACLITAXEL
     Indication: BREAST CANCER METASTATIC
     Dosage: 260 MG/M2, 3/WEEK, ON DAY 1
     Route: 042
  11. GEMCITABINE [Suspect]
     Active Substance: GEMCITABINE\GEMCITABINE HYDROCHLORIDE
     Indication: DISEASE PROGRESSION
     Dosage: 1000 MG/M2, DAYS 1 AND 8
     Route: 065
  12. EVEROLIMUS. [Suspect]
     Active Substance: EVEROLIMUS
     Indication: DISEASE PROGRESSION
     Dosage: 10 MG, DAILY
     Route: 065
     Dates: start: 201507
  13. VINORELBINE [Suspect]
     Active Substance: VINORELBINE\VINORELBINE TARTRATE
     Indication: BREAST CANCER METASTATIC
     Dosage: 60 MG/M2, ON DAYS 1
     Route: 048
  14. 5-FLUOROURACIL [Suspect]
     Active Substance: FLUOROURACIL
     Indication: BREAST CANCER METASTATIC
     Dosage: 1200 MG/M2, UNK
     Route: 013
  15. FOLINIC ACID [Suspect]
     Active Substance: LEUCOVORIN
     Indication: BREAST CANCER METASTATIC
     Dosage: 100 MG, DAILYM IN TWO HOURS FOR 2 CONSECUTIVE DAYS EVERY TWO WEEKS
     Route: 042

REACTIONS (4)
  - Gastrointestinal pain [Unknown]
  - Palmar-plantar erythrodysaesthesia syndrome [Unknown]
  - Abdominal pain [Unknown]
  - Disease progression [Unknown]

NARRATIVE: CASE EVENT DATE: 201311
